FAERS Safety Report 7470690-8 (Version None)
Quarter: 2011Q2

REPORT INFORMATION
  Report Type: 
  Country: None (occurrence: None)
  Receive Date: 20110510
  Receipt Date: 20110405
  Transmission Date: 20111010
  Serious: No
  Sender: FDA-Public Use
  Company Number: US-BAYER-2011-030489

PATIENT
  Sex: Female
  Weight: 63 kg

DRUGS (4)
  1. CITRACAL PETITES [Suspect]
     Dosage: 1 DF, QD
     Route: 048
     Dates: start: 20110301
  2. GABAPENTIN [Concomitant]
     Dosage: UNK
     Route: 048
  3. SIMVASTATIN [Concomitant]
     Dosage: UNK
     Route: 048
  4. TRAZODONE HCL [Concomitant]
     Dosage: UNK
     Route: 048

REACTIONS (2)
  - INFLAMMATION [None]
  - BACK PAIN [None]
